FAERS Safety Report 8548655-4 (Version None)
Quarter: 2012Q2

REPORT INFORMATION
  Report Type: 
  Country: None (occurrence: None)
  Receive Date: 20120416
  Receipt Date: 20110519
  Transmission Date: 20120825
  Serious: Yes (Hospitalization)
  Sender: FDA-Public Use
  Company Number: PHHY2011US27343

PATIENT
  Age: 83 Year
  Sex: Female

DRUGS (11)
  1. PREVACID [Concomitant]
  2. OMEPRAZOLE [Concomitant]
  3. ORENCIA [Concomitant]
  4. DIOVAN [Suspect]
     Dosage: 160 MG, QD
  5. PRILOSEC [Concomitant]
  6. ASPIRIN [Concomitant]
  7. LEVOTHYROXINE SODIUM [Concomitant]
  8. MULTIVITAMIN (VITAMIN NOS) [Concomitant]
  9. SYNTHROID [Concomitant]
  10. COUMADIN [Concomitant]
  11. PRAVASTATIN [Concomitant]

REACTIONS (6)
  - HYPOTENSION [None]
  - SYNCOPE [None]
  - LOSS OF CONSCIOUSNESS [None]
  - DIZZINESS [None]
  - CONFUSIONAL STATE [None]
  - INCORRECT DOSE ADMINISTERED [None]
